FAERS Safety Report 7297743-1 (Version None)
Quarter: 2011Q1

REPORT INFORMATION
  Report Type: 
  Country: None (occurrence: None)
  Receive Date: 20110214
  Receipt Date: 20110214
  Transmission Date: 20110831
  Serious: Yes (Life-Threatening)
  Sender: FDA-Public Use
  Company Number: None

PATIENT
  Age: 55 Year
  Sex: Male
  Weight: 99.7913 kg

DRUGS (1)
  1. XELODA [Suspect]
     Indication: COLON CANCER
     Dosage: 2500MG Q AM PO; 2000MG Q PM PO
     Route: 048
     Dates: start: 20110116, end: 20110118

REACTIONS (2)
  - PAIN IN EXTREMITY [None]
  - VASOSPASM [None]
